FAERS Safety Report 7558362-2 (Version None)
Quarter: 2011Q2

REPORT INFORMATION
  Report Type: 
  Country: None (occurrence: None)
  Receive Date: 20110620
  Receipt Date: 20110607
  Transmission Date: 20111010
  Serious: Yes (Hospitalization, Other)
  Sender: FDA-Public Use
  Company Number: PHHY2011BR13912

PATIENT
  Sex: Female

DRUGS (1)
  1. DIOVAN [Suspect]
     Dosage: UNK

REACTIONS (3)
  - NERVOUSNESS [None]
  - CEREBROVASCULAR ACCIDENT [None]
  - HEMIPLEGIA [None]
